FAERS Safety Report 6023453-4 (Version None)
Quarter: 2008Q4

REPORT INFORMATION
  Report Type: 
  Country: None (occurrence: None)
  Receive Date: 20081226
  Receipt Date: 20081226
  Transmission Date: 20090506
  Serious: Yes (Death, Other)
  Sender: FDA-Public Use
  Company Number: None

PATIENT
  Sex: Male
  Weight: 64.1 kg

DRUGS (12)
  1. ZACTIMA [Suspect]
     Indication: GLIOBLASTOMA MULTIFORME
     Dosage: 300MG QD DAILY X 28 DAYS PO
     Route: 048
     Dates: start: 20081201, end: 20081216
  2. HYDREA [Suspect]
     Indication: GLIOBLASTOMA MULTIFORME
     Dosage: 500MG PO BID BID X 28 DAYS PO
     Route: 048
     Dates: start: 20081201, end: 20081216
  3. GLEEVEC [Suspect]
     Indication: GLIOBLASTOMA MULTIFORME
     Dosage: 400MG QD DAILY X 28 DAYS PO
     Route: 048
     Dates: start: 20081201, end: 20081216
  4. LAMICTAL [Concomitant]
  5. KEPPRA [Concomitant]
  6. VALTREX [Concomitant]
  7. COLACE [Concomitant]
  8. METAMUCIL [Concomitant]
  9. DECADRON [Concomitant]
  10. LISINOPRIL [Concomitant]
  11. MULTI-VITAMIN [Concomitant]
  12. CALCIUM/VITAMIN D [Concomitant]

REACTIONS (4)
  - ASTHENIA [None]
  - DISEASE PROGRESSION [None]
  - NEUROLOGICAL DECOMPENSATION [None]
  - PERIPHERAL MOTOR NEUROPATHY [None]
